FAERS Safety Report 8284911 (Version 3)
Quarter: 2013Q3

REPORT INFORMATION
  Report Type: Spontaneous
  Country: US (occurrence: None)
  Receive Date: 20111205
  Receipt Date: 20130725
  Transmission Date: 20140515
  Serious: Yes (Hospitalization)
  Sender: FDA-Public Use
  Company Number: GER/SPN/11/0022154

PATIENT
  Age: 78 Year
  Sex: Male

DRUGS (11)
  1. CLOPIDOGREL [Suspect]
     Indication: PRODUCT USED FOR UNKNOWN INDICATION
     Dosage: 75 MG, 1 IN 1 D, ORAL
     Route: 048
     Dates: start: 200808, end: 20110604
  2. TRANGOREX [Suspect]
     Indication: PRODUCT USED FOR UNKNOWN INDICATION
     Dosage: 200 MG, 1 IN 1 D, ORAL
     Route: 048
     Dates: start: 201011, end: 20110604
  3. ATORVASTATIN CALCIUM [Suspect]
     Indication: HYPERLIPIDAEMIA
     Dosage: 40 MG, 1 IN 1 D, ORAL
     Route: 048
     Dates: end: 20110604
  4. ACETYLSALICYLIC ACID (ACETYLSALICYLIC ACID) [Suspect]
     Indication: PRODUCT USED FOR UNKNOWN INDICATION
     Dosage: 150 MG, 1 IN 1 D, ORAL
     Route: 048
     Dates: start: 200808, end: 20110604
  5. SINTROM [Suspect]
     Indication: PRODUCT USED FOR UNKNOWN INDICATION
     Dosage: ORAL
     Route: 048
     Dates: end: 20110604
  6. INSULIN MIXTARD (INSULIN INIT) [Concomitant]
  7. UNIKET (ISOSORBIDE MONONITRATE) [Concomitant]
  8. HYDRALAZINE (HYDRALAZINE) [Concomitant]
  9. RANITIDINE HYDROCHLORIDE [Concomitant]
  10. TAMSULOSIN HYDROCHLORIDE [Concomitant]
  11. BISOPROLOL FUMARATE [Concomitant]

REACTIONS (9)
  - Fall [None]
  - Blood pressure increased [None]
  - Atrial fibrillation [None]
  - Cerebral haematoma [None]
  - Cerebral atrophy [None]
  - Drug interaction [None]
  - International normalised ratio decreased [None]
  - Agitation [None]
  - Hypoacusis [None]
